FAERS Safety Report 8665130 (Version 5)
Quarter: 2013Q4

REPORT INFORMATION
  Report Type: Spontaneous
  Country: US (occurrence: US)
  Receive Date: 20120716
  Receipt Date: 20131101
  Transmission Date: 20140711
  Serious: No
  Sender: FDA-Public Use
  Company Number: US-009507513-1207USA003044

PATIENT
  Age: 66 Year
  Sex: Female

DRUGS (3)
  1. COSOPT [Suspect]
     Indication: GLAUCOMA
     Dosage: 1 DROP BID
     Route: 047
     Dates: start: 20120702, end: 20120702
  2. COSOPT [Suspect]
     Dosage: UNK
     Dates: start: 20120627, end: 20120627
  3. TRAVATAN [Concomitant]
     Indication: GLAUCOMA
     Dosage: UNK, ONCE

REACTIONS (5)
  - Pharyngeal oedema [Recovering/Resolving]
  - Drug hypersensitivity [Unknown]
  - Dyspnoea [Recovered/Resolved]
  - Dysphagia [Recovered/Resolved]
  - Cough [Recovered/Resolved]
